FAERS Safety Report 9096939 (Version 1)
Quarter: 2013Q1

REPORT INFORMATION
  Report Type: Spontaneous
  Country: US (occurrence: None)
  Receive Date: 20130124
  Receipt Date: 20130124
  Transmission Date: 20140127
  Serious: Yes (Hospitalization)
  Sender: FDA-Public Use
  Company Number: 2013-000211

PATIENT
  Age: 35 Year
  Sex: Female

DRUGS (2)
  1. SARAFEM [Suspect]
     Indication: POSTPARTUM DEPRESSION
     Route: 048
  2. CONTRACEPTIVES [Concomitant]

REACTIONS (2)
  - Schizoaffective disorder [None]
  - Amnesia [None]
